FAERS Safety Report 4623467-2 (Version None)
Quarter: 2005Q1

REPORT INFORMATION
  Report Type: 
  Country: None (occurrence: None)
  Receive Date: 20050330
  Receipt Date: 20050321
  Transmission Date: 20050727
  Serious: Yes (Hospitalization)
  Sender: FDA-Public Use
  Company Number: 2005CG00581

PATIENT
  Age: 67 Year
  Sex: Female

DRUGS (4)
  1. ATACAND [Suspect]
     Dosage: 1 DF QD PO
     Route: 048
     Dates: start: 20050302, end: 20050307
  2. NOLVADEX [Concomitant]
  3. ALDALIX [Concomitant]
  4. IMOVANE [Concomitant]

REACTIONS (3)
  - FACE OEDEMA [None]
  - HYPOTENSION [None]
  - OEDEMA PERIPHERAL [None]
